FAERS Safety Report 13978203 (Version 2)
Quarter: 2019Q1

REPORT INFORMATION
  Report Type: Spontaneous
  Country: TR (occurrence: TR)
  Receive Date: 20170915
  Receipt Date: 20190305
  Transmission Date: 20190417
  Serious: Yes (Life-Threatening, Other)
  Sender: FDA-Public Use
  Company Number: TR-BAUSCH-BL-2017-027056

PATIENT
  Age: 65 Year
  Sex: Male

DRUGS (2)
  1. FLUDARABINE [Concomitant]
     Active Substance: FLUDARABINE PHOSPHATE
     Indication: CHRONIC LYMPHOCYTIC LEUKAEMIA
     Dosage: 3 CYCLICAL
  2. DEXAMETHASONE. [Suspect]
     Active Substance: DEXAMETHASONE
     Indication: RICHTER^S SYNDROME
     Route: 065

REACTIONS (1)
  - Drug ineffective [Unknown]
